FAERS Safety Report 6788163-4 (Version None)
Quarter: 2010Q2

REPORT INFORMATION
  Report Type: 
  Country: None (occurrence: None)
  Receive Date: 20100623
  Receipt Date: 20080130
  Transmission Date: 20101027
  Serious: No
  Sender: FDA-Public Use
  Company Number: US-PFIZER INC-2008010602

PATIENT
  Sex: Male
  Weight: 90.72 kg

DRUGS (12)
  1. XALATAN [Suspect]
     Indication: GLAUCOMA
     Dosage: DAILY EVERY DAY
     Route: 047
     Dates: start: 20071001
  2. COSOPT [Suspect]
     Indication: GLAUCOMA
     Dosage: DAILY EVERY DAY
     Route: 047
     Dates: start: 20071001
  3. AMITRIPTYLINE [Concomitant]
  4. GLYBURIDE [Concomitant]
  5. LISINOPRIL [Concomitant]
  6. HYDROCHLOROTHIAZIDE [Concomitant]
  7. LOVASTATIN [Concomitant]
  8. METFORMIN HCL [Concomitant]
  9. METOCLOPRAMIDE [Concomitant]
  10. PRILOSEC [Concomitant]
  11. TEMAZEPAM [Concomitant]
  12. PREDNISOLONE [Concomitant]

REACTIONS (2)
  - EYE DISORDER [None]
  - EYE PAIN [None]
